FAERS Safety Report 5191168-0 (Version None)
Quarter: 2006Q4

REPORT INFORMATION
  Report Type: 
  Country: None (occurrence: None)
  Receive Date: 20061220
  Receipt Date: 20061220
  Transmission Date: 20070319
  Serious: Yes (Hospitalization)
  Sender: FDA-Public Use
  Company Number: None

PATIENT
  Age: 81 Year

DRUGS (16)
  1. DIGOXIN [Suspect]
     Indication: ATRIAL FIBRILLATION
     Dosage: 0.25 MG DAILY CHRONIC
  2. CARVEDILOL [Suspect]
     Indication: ATRIAL FIBRILLATION
     Dosage: 12.5 MG PO BID  CHRONIC
     Route: 048
  3. CARVEDILOL [Suspect]
     Indication: HYPERTENSION
     Dosage: 12.5 MG PO BID  CHRONIC
     Route: 048
  4. COREG [Concomitant]
  5. DIGOXIN [Concomitant]
  6. CALCIUM [Concomitant]
  7. LASIX [Concomitant]
  8. NAMENDA [Concomitant]
  9. POTASSIUM ACETATE [Concomitant]
  10. COUMADIN [Concomitant]
  11. ARICEPT [Concomitant]
  12. ENALAPRIL MALEATE [Concomitant]
  13. ZOCOR [Concomitant]
  14. SENNA [Concomitant]
  15. MOM [Concomitant]
  16. MYLANTA [Concomitant]

REACTIONS (3)
  - BRADYCARDIA [None]
  - HYPOTENSION [None]
  - HYPOXIA [None]
